FAERS Safety Report 21408940 (Version 1)
Quarter: 2022Q4

REPORT INFORMATION
  Report Type: Spontaneous
  Country: US (occurrence: US)
  Receive Date: 20221004
  Receipt Date: 20221004
  Transmission Date: 20230112
  Serious: No
  Sender: FDA-Public Use
  Company Number: US-SA-SAC20221004000110

PATIENT
  Sex: Male

DRUGS (2)
  1. DUPIXENT [Suspect]
     Active Substance: DUPILUMAB
     Indication: Dermatitis atopic
     Dosage: 300 MG, QOW
     Route: 058
     Dates: start: 201904
  2. RINVOQ [Suspect]
     Active Substance: UPADACITINIB
     Indication: Hyper IgE syndrome
     Dosage: UNK

REACTIONS (2)
  - Respiratory tract infection viral [Unknown]
  - Off label use [Unknown]
